FAERS Safety Report 16838749 (Version 1)
Quarter: 2019Q3

REPORT INFORMATION
  Report Type: Report from Study
  Country: CA (occurrence: CA)
  Receive Date: 20190923
  Receipt Date: 20190923
  Transmission Date: 20191005
  Serious: Yes (Other)
  Sender: FDA-Public Use
  Company Number: PHHY2017CA061677

PATIENT
  Age: 69 Year
  Sex: Male

DRUGS (1)
  1. SANDOSTATIN LAR DEPOT [Suspect]
     Active Substance: OCTREOTIDE ACETATE
     Indication: CARCINOID TUMOUR
     Dosage: 30 MG, QMO (EVERY 4 WEEKS)
     Route: 030
     Dates: start: 20170324

REACTIONS (8)
  - Fall [Unknown]
  - Heart rate decreased [Unknown]
  - Blood pressure increased [Recovering/Resolving]
  - Loss of consciousness [Unknown]
  - Weight decreased [Unknown]
  - White coat hypertension [Recovering/Resolving]
  - Anxiety [Unknown]
  - Dizziness [Unknown]

NARRATIVE: CASE EVENT DATE: 20170424
